FAERS Safety Report 21382266 (Version 1)
Quarter: 2022Q3

REPORT INFORMATION
  Report Type: 
  Country: US (occurrence: US)
  Receive Date: 20220927
  Receipt Date: 20220927
  Transmission Date: 20221026
  Serious: No
  Sender: FDA-Public Use
  Company Number: US-C B Fleet Co Inc-202112-US-004110

PATIENT
  Age: 64 Year
  Sex: Female

DRUGS (2)
  1. MONISTAT 7 7-DAY DISPOSABLE APPLICATORS [Suspect]
     Active Substance: MICONAZOLE NITRATE
     Indication: Fungal infection
     Dosage: I WAS ON DAY 4. I HAVE 3 LEFT.
     Route: 067
  2. ELIQUIS [Suspect]
     Active Substance: APIXABAN
     Dosage: BID

REACTIONS (1)
  - Vaginal haemorrhage [Recovered/Resolved]
